FAERS Safety Report 18166620 (Version 1)
Quarter: 2020Q3

REPORT INFORMATION
  Report Type: Spontaneous
  Country: JP (occurrence: JP)
  Receive Date: 20200819
  Receipt Date: 20200819
  Transmission Date: 20201103
  Serious: Yes (Other)
  Sender: FDA-Public Use
  Company Number: JP-TEVA-2020-JP-1815146

PATIENT
  Age: 69 Year
  Sex: Male

DRUGS (10)
  1. LEVOFOLINATE [Concomitant]
     Active Substance: LEVOLEUCOVORIN CALCIUM
     Indication: COLON CANCER METASTATIC
     Dosage: RECEIVED AS A PART OF MFOLFOX6
     Route: 065
     Dates: start: 201801
  2. FLUOROURACIL. [Concomitant]
     Active Substance: FLUOROURACIL
     Indication: COLON CANCER METASTATIC
     Dosage: FLUOROURACIL (SUSTAINED); RECEIVED AS A PART OF FOLFIRI.
     Route: 065
     Dates: start: 201806
  3. FLUOROURACIL. [Concomitant]
     Active Substance: FLUOROURACIL
     Indication: COLON CANCER METASTATIC
     Dosage: FLUOROURACIL (SUSTAINED); RECEIVED AS A PART OF MFOLFOX6.
     Route: 065
     Dates: start: 201801
  4. IRINOTECAN [Suspect]
     Active Substance: IRINOTECAN
     Indication: COLON CANCER METASTATIC
     Dosage: RECEIVED AS A PART OF FOLFIRI.
     Route: 065
     Dates: start: 201806
  5. LEVOFOLINATE [Concomitant]
     Active Substance: LEVOLEUCOVORIN CALCIUM
     Dosage: RECEIVED AS A PART OF FOLFIRI.
     Route: 065
     Dates: start: 201806
  6. FLUOROURACIL. [Concomitant]
     Active Substance: FLUOROURACIL
     Indication: COLON CANCER METASTATIC
     Dosage: FLUOROURACIL (RAPID); RECEIVED AS A PART OF MFOLFOX6.
     Route: 065
     Dates: start: 201801
  7. OXALIPLATIN. [Suspect]
     Active Substance: OXALIPLATIN
     Indication: COLON CANCER METASTATIC
     Dosage: RECEIVED AS A PART OF MFOLFOX6
     Route: 065
     Dates: start: 201801
  8. FLUOROURACIL. [Concomitant]
     Active Substance: FLUOROURACIL
     Indication: COLON CANCER METASTATIC
     Dosage: FLUOROURACIL (RAPID); RECEIVED AS A PART OF FOLFIRI
     Route: 065
     Dates: start: 201806
  9. BEVACIZUMAB. [Concomitant]
     Active Substance: BEVACIZUMAB
     Indication: COLON CANCER METASTATIC
     Dosage: RECEIVED WITH MFOLFOX6.
     Route: 065
     Dates: start: 201801
  10. BEVACIZUMAB. [Concomitant]
     Active Substance: BEVACIZUMAB
     Dosage: RECEIVED WITH FOLFIRI.
     Route: 065
     Dates: start: 201806

REACTIONS (3)
  - Drug hypersensitivity [Unknown]
  - Neuropathy peripheral [Not Recovered/Not Resolved]
  - Neuropathy peripheral [Recovering/Resolving]
